FAERS Safety Report 5741804-2 (Version None)
Quarter: 2008Q2

REPORT INFORMATION
  Report Type: 
  Country: None (occurrence: None)
  Receive Date: 20080515
  Receipt Date: 20080515
  Transmission Date: 20081010
  Serious: No
  Sender: FDA-Public Use
  Company Number: None

PATIENT
  Age: 43 Year
  Sex: Female

DRUGS (4)
  1. ISONIAZID [Suspect]
     Indication: LYMPHADENITIS
     Dosage: ORAL;300.0 MILLIGRAM
  2. ISONIAZID [Suspect]
     Indication: TUBERCULOSIS
     Dosage: ORAL;300.0 MILLIGRAM
  3. PYRAZINAMIDE [Concomitant]
  4. RIFAMPIN [Concomitant]

REACTIONS (2)
  - DIZZINESS [None]
  - HEPATITIS [None]
